FAERS Safety Report 7419929-5 (Version None)
Quarter: 2011Q2

REPORT INFORMATION
  Report Type: 
  Country: None (occurrence: None)
  Receive Date: 20110418
  Receipt Date: 20110404
  Transmission Date: 20111010
  Serious: Yes (Hospitalization)
  Sender: FDA-Public Use
  Company Number: US-BIOGENIDEC-2011BI007723

PATIENT
  Age: 44 Year
  Sex: Female
  Weight: 58 kg

DRUGS (4)
  1. BACLOFEN [Concomitant]
     Indication: PRODUCT USED FOR UNKNOWN INDICATION
  2. TYSABRI [Suspect]
     Route: 042
     Dates: start: 20110101
  3. AMANTADINE HCL [Concomitant]
     Indication: PRODUCT USED FOR UNKNOWN INDICATION
  4. TYSABRI [Suspect]
     Indication: MULTIPLE SCLEROSIS
     Route: 042
     Dates: start: 20090106, end: 20101101

REACTIONS (2)
  - PNEUMONIA [None]
  - NEPHROLITHIASIS [None]
